FAERS Safety Report 16655767 (Version 1)
Quarter: 2019Q3

REPORT INFORMATION
  Report Type: Report from Study
  Country: BR (occurrence: BR)
  Receive Date: 20190801
  Receipt Date: 20190801
  Transmission Date: 20191004
  Serious: Yes (Disabling)
  Sender: FDA-Public Use
  Company Number: PHHY2019BR176238

PATIENT
  Sex: Female

DRUGS (1)
  1. EXELON PATCH [Suspect]
     Active Substance: RIVASTIGMINE
     Indication: PRODUCT USED FOR UNKNOWN INDICATION
     Dosage: UNK A YEAR OR LESS OR MORE
     Route: 062

REACTIONS (5)
  - Nervousness [Unknown]
  - Mood altered [Unknown]
  - Agitation [Unknown]
  - Gait inability [Unknown]
  - Malaise [Unknown]
